FAERS Safety Report 9343345 (Version 3)
Quarter: 2013Q3

REPORT INFORMATION
  Report Type: Spontaneous
  Country: PT (occurrence: PT)
  Receive Date: 20130612
  Receipt Date: 20130712
  Transmission Date: 20140515
  Serious: Yes (Other)
  Sender: FDA-Public Use
  Company Number: PT-ROCHE-1234304

PATIENT
  Sex: Female
  Weight: 64 kg

DRUGS (4)
  1. XELODA [Suspect]
     Indication: BREAST CANCER METASTATIC
     Dosage: 4 IN THE MORNING AND 4 IN THE EVENING
     Route: 048
     Dates: start: 201212, end: 201306
  2. XELODA [Suspect]
     Route: 048
     Dates: start: 20130604
  3. XELODA [Suspect]
     Route: 048
     Dates: start: 20130605
  4. TAMOXIFEN [Concomitant]

REACTIONS (9)
  - Palmar-plantar erythrodysaesthesia syndrome [Not Recovered/Not Resolved]
  - Diarrhoea [Recovered/Resolved]
  - Malignant melanoma [Not Recovered/Not Resolved]
  - Anal fistula [Recovering/Resolving]
  - Weight decreased [Not Recovered/Not Resolved]
  - Pyrexia [Recovered/Resolved]
  - Decreased activity [Not Recovered/Not Resolved]
  - Onychomadesis [Not Recovered/Not Resolved]
  - Onychomadesis [Not Recovered/Not Resolved]
